FAERS Safety Report 9105337 (Version 1)
Quarter: 2013Q1

REPORT INFORMATION
  Report Type: Report from Study
  Country: US (occurrence: US)
  Receive Date: 20130220
  Receipt Date: 20130220
  Transmission Date: 20140127
  Serious: Yes (Hospitalization, Other)
  Sender: FDA-Public Use
  Company Number: US-BRISTOL-MYERS SQUIBB COMPANY-17375924

PATIENT
  Sex: Male

DRUGS (15)
  1. DASATINIB [Suspect]
     Indication: PROSTATE CANCER
     Route: 048
     Dates: start: 20120817, end: 20121106
  2. ABIRATERONE ACETATE [Suspect]
     Indication: PROSTATE CANCER
     Route: 048
     Dates: start: 20120105, end: 20121128
  3. SUNITINIB MALATE [Suspect]
     Indication: PROSTATE CANCER
     Route: 048
     Dates: start: 20120525, end: 20120716
  4. CELEBREX [Concomitant]
  5. CIPRO [Concomitant]
  6. LASIX [Concomitant]
  7. NEURONTIN [Concomitant]
     Dosage: AT BEDTIME
  8. NORCO [Concomitant]
     Dosage: 1 DF = 5/325 UNITS NOS PRN
  9. LUPRON [Concomitant]
  10. MULTIVITAMIN [Concomitant]
  11. CHLORTHALIDONE [Concomitant]
     Dosage: AT BED TIME
  12. KLOR-CON [Concomitant]
  13. FLOMAX [Concomitant]
     Dosage: AT BEDTIME
  14. ZYTIGA [Concomitant]
  15. PREDNISONE [Concomitant]

REACTIONS (4)
  - Renal failure acute [Unknown]
  - Dehydration [Unknown]
  - Decreased appetite [Unknown]
  - Asthenia [Unknown]
